FAERS Safety Report 4595079-0 (Version None)
Quarter: 2005Q1

REPORT INFORMATION
  Report Type: 
  Country: None (occurrence: None)
  Receive Date: 20050225
  Receipt Date: 20050210
  Transmission Date: 20050727
  Serious: Yes (Disabling)
  Sender: FDA-Public Use
  Company Number: 0104-2053

PATIENT
  Age: 77 Year
  Sex: Female
  Weight: 73.4827 kg

DRUGS (8)
  1. ADVICOR [Suspect]
     Indication: HIGH DENSITY LIPOPROTEIN DECREASED
     Dosage: 1 TABLET (S) QHS PO
     Route: 048
     Dates: start: 20050104, end: 20050113
  2. ADVICOR [Suspect]
     Indication: LOW DENSITY LIPOPROTEIN INCREASED
     Dosage: 1 TABLET (S) QHS PO
     Route: 048
     Dates: start: 20050104, end: 20050113
  3. ACCUPRIL [Concomitant]
  4. ATENOLOL [Concomitant]
  5. LASIX [Concomitant]
  6. FOSAMAX [Concomitant]
  7. DETROL LA [Concomitant]
  8. CALCIUM GLUCONATE [Concomitant]

REACTIONS (6)
  - ARTHRALGIA [None]
  - BLOOD PRESSURE DIASTOLIC DECREASED [None]
  - BODY TEMPERATURE INCREASED [None]
  - MYALGIA [None]
  - OEDEMA PERIPHERAL [None]
  - RESPIRATORY RATE INCREASED [None]
